FAERS Safety Report 13919477 (Version 2)
Quarter: 2019Q2

REPORT INFORMATION
  Report Type: Report from Study
  Country: US (occurrence: US)
  Receive Date: 20170830
  Receipt Date: 20190627
  Transmission Date: 20190711
  Serious: Yes (Hospitalization)
  Sender: FDA-Public Use
  Company Number: US-ROCHE-1973452

PATIENT
  Age: 62 Year
  Sex: Female
  Weight: 79 kg

DRUGS (25)
  1. LETROZOLE. [Concomitant]
     Active Substance: LETROZOLE
  2. OXALIPLATIN. [Concomitant]
     Active Substance: OXALIPLATIN
     Route: 065
     Dates: start: 20150129, end: 20160630
  3. PERTUZUMAB. [Suspect]
     Active Substance: PERTUZUMAB
     Indication: LEFT VENTRICULAR DYSFUNCTION
     Dosage: MAINTENANCE DOSE
     Route: 042
     Dates: start: 20170316
  4. EFFEXOR [Concomitant]
     Active Substance: VENLAFAXINE HYDROCHLORIDE
     Indication: HOT FLUSH
     Route: 065
     Dates: start: 20170721
  5. PERIDIN-C [Concomitant]
     Route: 048
     Dates: start: 20170721
  6. LASIX [Concomitant]
     Active Substance: FUROSEMIDE
     Dosage: 1 DOSE
     Route: 065
  7. CARVEDILOL. [Concomitant]
     Active Substance: CARVEDILOL
     Route: 065
  8. TAMOXIFEN [Concomitant]
     Active Substance: TAMOXIFEN
     Route: 048
     Dates: start: 20170721
  9. DIPHENOXYLATE/ATROPINE [Concomitant]
     Active Substance: ATROPINE\DIPHENOXYLATE
     Dosage: OF 2.5-0.025 MG
     Route: 048
     Dates: start: 20170721
  10. CARVEDILOL. [Concomitant]
     Active Substance: CARVEDILOL
     Route: 065
     Dates: start: 20170721
  11. IMODIUM A-D [Concomitant]
     Active Substance: LOPERAMIDE HYDROCHLORIDE
     Dosage: OF 2 MG
     Route: 048
     Dates: start: 20170721
  12. VINCRISTINE [Concomitant]
     Active Substance: VINCRISTINE
     Indication: BREAST CANCER METASTATIC
  13. TRASTUZUMAB. [Suspect]
     Active Substance: TRASTUZUMAB
     Indication: HER-2 POSITIVE BREAST CANCER
     Dosage: LOADING DOSE?MOST RECENT DOSE ON: 20/JUL/2017
     Route: 042
     Dates: start: 20170223, end: 20170223
  14. TRASTUZUMAB. [Suspect]
     Active Substance: TRASTUZUMAB
     Indication: LEFT VENTRICULAR DYSFUNCTION
     Dosage: MAINTENANCE DOSE
     Route: 042
     Dates: start: 20170316
  15. LOMOTIL [ATROPINE SULFATE;DIPHENOXYLATE HYDROCHLORIDE] [Concomitant]
     Route: 048
     Dates: start: 20170721
  16. PREDNISOLONE. [Concomitant]
     Active Substance: PREDNISOLONE
     Indication: BREAST CANCER METASTATIC
  17. DOXORUBICIN [Concomitant]
     Active Substance: DOXORUBICIN
     Indication: BREAST CANCER METASTATIC
  18. PERTUZUMAB. [Suspect]
     Active Substance: PERTUZUMAB
     Indication: HER-2 POSITIVE BREAST CANCER
     Dosage: LOADING DOSE?MOST RECENT DOSE ON: 20/JUL/2017
     Route: 042
     Dates: start: 20170223, end: 20170223
  19. TRASTUZUMAB. [Suspect]
     Active Substance: TRASTUZUMAB
     Route: 042
     Dates: start: 20161007
  20. CANDESARTAN. [Concomitant]
     Active Substance: CANDESARTAN
     Route: 065
  21. PERTUZUMAB. [Suspect]
     Active Substance: PERTUZUMAB
     Route: 042
     Dates: start: 20161007
  22. PROCHLORPERAZINE. [Concomitant]
     Active Substance: PROCHLORPERAZINE
     Route: 065
     Dates: start: 20170721
  23. VITAMIN B6 [Concomitant]
     Active Substance: PYRIDOXINE HYDROCHLORIDE
     Route: 065
     Dates: start: 20170721
  24. 5-FLUOROURACIL [FLUOROURACIL] [Concomitant]
     Active Substance: FLUOROURACIL
     Route: 065
     Dates: start: 20150129, end: 20160630
  25. FUROSEMIDE. [Concomitant]
     Active Substance: FUROSEMIDE
     Route: 042

REACTIONS (4)
  - Cardiac failure [Unknown]
  - Ejection fraction decreased [Unknown]
  - Left ventricular dysfunction [Unknown]
  - Dyspnoea [Recovered/Resolved]

NARRATIVE: CASE EVENT DATE: 20170801
